FAERS Safety Report 8256052-4 (Version None)
Quarter: 2012Q2

REPORT INFORMATION
  Report Type: 
  Country: None (occurrence: None)
  Receive Date: 20120403
  Receipt Date: 20120330
  Transmission Date: 20120825
  Serious: Yes (Death, Hospitalization)
  Sender: FDA-Public Use
  Company Number: DE-ROCHE-1053879

PATIENT
  Age: 38 Year
  Sex: Male
  Weight: 78 kg

DRUGS (14)
  1. NOVALGIN [Concomitant]
     Dosage: IF NEEDED
  2. NOVALGIN [Concomitant]
  3. TEMOZOLOMIDE [Suspect]
     Indication: GLIOBLASTOMA MULTIFORME
     Route: 048
  4. DIMENHYDRINAT [Concomitant]
     Dosage: IF NEEDED
  5. GRANISETRON [Concomitant]
  6. GRANISETRON [Concomitant]
     Dosage: REPORTED: GRANISETRON-HAMEIN. PRN IF NEEDED
     Dates: start: 20100930, end: 20110304
  7. ONDANSETRON [Concomitant]
     Dosage: WHEN NEEDED
  8. IRINOTECAN HCL [Suspect]
     Indication: GLIOBLASTOMA MULTIFORME
     Dosage: LAST DOSE PRIOR TO THE EVENT : 22 DECEMBER 2010, INFUSION
     Route: 042
  9. PANTOPRAZOLE [Concomitant]
  10. PIPERACILLIN AND TAZOBACTAM [Concomitant]
     Dosage: TDD: 12/1.5 G
     Dates: start: 20110721, end: 20110727
  11. SULTAMICILLIN [Concomitant]
     Dates: start: 20110727
  12. AVASTIN [Suspect]
     Indication: GLIOBLASTOMA MULTIFORME
     Dosage: LAST DOSE PRIOR TO SAE: 8 JULY 2011. INFUSION
     Route: 042
  13. DEXAMETHASONE SODIUM PHOSPHATE [Concomitant]
     Dates: start: 20111213
  14. CERTOPARIN [Concomitant]
     Dosage: TDD: 3000 IE
     Dates: start: 20110722, end: 20110726

REACTIONS (1)
  - GLIOMATOSIS CEREBRI [None]
